FAERS Safety Report 16472678 (Version 8)
Quarter: 2019Q3

REPORT INFORMATION
  Report Type: Report from Study
  Country: US (occurrence: US)
  Receive Date: 20190625
  Receipt Date: 20190924
  Transmission Date: 20191004
  Serious: No
  Sender: FDA-Public Use
  Company Number: PHEH2019US026373

PATIENT
  Age: 56 Year
  Sex: Female

DRUGS (1)
  1. GILENYA [Suspect]
     Active Substance: FINGOLIMOD HYDROCHLORIDE
     Indication: MULTIPLE SCLEROSIS
     Dosage: 0.5 MG, QD
     Route: 048
     Dates: start: 20190619

REACTIONS (12)
  - Somnolence [Unknown]
  - Insomnia [Unknown]
  - Fatigue [Unknown]
  - Rhinorrhoea [Recovering/Resolving]
  - Nasopharyngitis [Unknown]
  - Headache [Unknown]
  - Oropharyngeal discomfort [Unknown]
  - Ankle fracture [Unknown]
  - Eye discharge [Recovering/Resolving]
  - Anxiety [Unknown]
  - Balance disorder [Unknown]
  - Cough [Unknown]

NARRATIVE: CASE EVENT DATE: 20190619
